FAERS Safety Report 6199558 (Version 18)
Quarter: 2014Q1

REPORT INFORMATION
  Report Type: Spontaneous
  Country: US (occurrence: US)
  Receive Date: 20061221
  Receipt Date: 20140107
  Transmission Date: 20141002
  Serious: Yes (Death, Hospitalization, Other)
  Sender: FDA-Public Use
  Company Number: PHEH2006US15238

PATIENT
  Age: 70 Year
  Sex: Male

DRUGS (85)
  1. AREDIA [Suspect]
     Dosage: 90 MG, QW4
  2. ZOMETA [Suspect]
  3. REVLIMID [Concomitant]
  4. DEXAMETHASONE [Concomitant]
  5. VELCADE [Concomitant]
  6. CORGARD [Concomitant]
     Dosage: 20 MG, QD
  7. LASIX [Concomitant]
     Dosage: 20 MG, QD
  8. K-DUR [Concomitant]
     Dosage: 20 MEQ, QD
  9. ELAVIL [Concomitant]
     Dosage: 25 MG, QD
  10. PRILOSEC [Concomitant]
     Dosage: 20 MG, QD
  11. INTERFERON [Concomitant]
  12. DILANTIN                                /AUS/ [Concomitant]
     Route: 048
  13. ADVIL [Concomitant]
  14. NAPROSYN [Concomitant]
  15. PREDNISONE [Concomitant]
  16. MS CONTIN [Concomitant]
  17. PERCOCET [Concomitant]
  18. NEURONTIN [Concomitant]
  19. CELEXA [Concomitant]
  20. MAG-OX [Concomitant]
  21. FAMVIR (FAMCICLOVIR) [Concomitant]
  22. LEVAQUIN [Concomitant]
  23. BACTRIM DS [Concomitant]
  24. INSULIN [Concomitant]
  25. SINGULAIR [Concomitant]
  26. THALIDOMIDE [Concomitant]
  27. CITALOPRAM HYDROBROMIDE [Concomitant]
  28. MAGNESIUM OXIDE [Concomitant]
  29. OMEPRAZOLE [Concomitant]
  30. ALBUTEROL + IPRATROPIUM [Concomitant]
  31. CO-TRIMOXAZOLE [Concomitant]
  32. LEVOFLOXACIN [Concomitant]
  33. SIMVASTATIN [Concomitant]
  34. RABEPRAZOLE [Concomitant]
  35. DIFLUCAN [Concomitant]
  36. CELEBREX [Concomitant]
  37. FLEXERIL [Concomitant]
  38. LYRICA [Concomitant]
  39. LOVENOX [Concomitant]
  40. AMOXICILLIN [Concomitant]
  41. GUAIFENESIN [Concomitant]
  42. BUSULFAN [Concomitant]
  43. RAPAMUNE [Concomitant]
  44. NADOLOL [Concomitant]
  45. POTASSIUM PHOSPHATE DIBASIC [Concomitant]
  46. MULTIVITAMINS [Concomitant]
  47. CYCLOPHOSPHAMIDE [Concomitant]
  48. ETOPOSIDE [Concomitant]
  49. VIOXX [Concomitant]
  50. VITAMIN B12 [Concomitant]
  51. LORTAB [Concomitant]
  52. ARANESP [Concomitant]
  53. VALTREX [Concomitant]
  54. COZAAR [Concomitant]
  55. RAPAMYCIN [Concomitant]
  56. PROCRIT                            /00909301/ [Concomitant]
  57. COUMADIN ^BOOTS^ [Concomitant]
  58. PREVACID [Concomitant]
  59. VANCOMYCIN [Concomitant]
  60. LANSOPRAZOLE [Concomitant]
  61. LOPERAMIDE [Concomitant]
  62. ATIVAN [Concomitant]
  63. MELPHALAN [Concomitant]
  64. POTASSIUM CHLORIDE [Concomitant]
  65. MAGNESIUM SULFATE [Concomitant]
  66. SODIUM PHOSPHATE [Concomitant]
  67. CEFEPIME [Concomitant]
  68. RELAFEN [Concomitant]
  69. VITAMIN E [Concomitant]
  70. ADRIAMYCIN [Concomitant]
  71. ALKERAN [Concomitant]
  72. TORECAN [Concomitant]
  73. NITROSTAT [Concomitant]
  74. PHENERGAN ^AVENTIS PHARMA^ [Concomitant]
  75. MYCELEX [Concomitant]
  76. MEPERGAN [Concomitant]
  77. TOBRAMYCIN [Concomitant]
  78. CALCIUM CARBONATE [Concomitant]
  79. LEXAPRO [Concomitant]
  80. OXYCONTIN [Concomitant]
  81. SULFAMETHOXAZOLE W/TRIMETHOPRIM [Concomitant]
  82. DAPSONE [Concomitant]
  83. IMMUNOGLOBULINS [Concomitant]
  84. ERYTHROMYCIN [Concomitant]
  85. FLUTAMIDE [Concomitant]

REACTIONS (109)
  - Multi-organ failure [Fatal]
  - Cardio-respiratory arrest [Fatal]
  - Osteonecrosis of jaw [Unknown]
  - General physical health deterioration [Unknown]
  - Pain [Unknown]
  - Anxiety [Unknown]
  - Decreased interest [Unknown]
  - Gastrointestinal haemorrhage [Unknown]
  - Anaemia [Unknown]
  - Pancytopenia [Unknown]
  - Blood glucose fluctuation [Unknown]
  - Osteoarthritis [Unknown]
  - Mass [Unknown]
  - Nephrolithiasis [Unknown]
  - Tendonitis [Unknown]
  - Bronchitis [Unknown]
  - Osteoporosis [Unknown]
  - Diabetes mellitus [Unknown]
  - Cataract [Unknown]
  - Chronic obstructive pulmonary disease [Unknown]
  - Pneumonia [Recovering/Resolving]
  - Pneumonia viral [Recovering/Resolving]
  - Lung infiltration [Recovering/Resolving]
  - Peripheral arterial occlusive disease [Unknown]
  - Cellulitis [Unknown]
  - Renal cyst [Unknown]
  - Prostate cancer [Unknown]
  - Prostatomegaly [Unknown]
  - Spinal compression fracture [Unknown]
  - Metastases to bone [Unknown]
  - Diverticulum intestinal [Unknown]
  - Cerebral ischaemia [Unknown]
  - Haematuria [Unknown]
  - Osteosclerosis [Unknown]
  - Dental caries [Unknown]
  - Bone disorder [Unknown]
  - Gingivitis [Unknown]
  - Dysphemia [Unknown]
  - Tremor [Recovering/Resolving]
  - Neuropathy peripheral [Unknown]
  - Lipoatrophy [Unknown]
  - Onychomycosis [Unknown]
  - Localised infection [Unknown]
  - Hyperlipidaemia [Unknown]
  - Asthma [Unknown]
  - Plasma cell myeloma recurrent [Unknown]
  - Hyperglycaemia [Unknown]
  - Upper respiratory tract infection [Unknown]
  - Neurodermatitis [Unknown]
  - Aphthous stomatitis [Unknown]
  - Otitis media [Unknown]
  - Swelling face [Unknown]
  - Proteinuria [Unknown]
  - Dyspnoea exertional [Unknown]
  - Back pain [Unknown]
  - Musculoskeletal pain [Unknown]
  - Ventricular extrasystoles [Unknown]
  - Ejection fraction decreased [Unknown]
  - Hypovolaemia [Unknown]
  - Dehydration [Unknown]
  - Liver function test abnormal [Unknown]
  - Blood creatine phosphokinase increased [Unknown]
  - Blood creatine phosphokinase MB increased [Unknown]
  - Hypomagnesaemia [Unknown]
  - Hypocalcaemia [Unknown]
  - Neutropenia [Unknown]
  - Constipation [Unknown]
  - Denervation atrophy [Unknown]
  - Myopathy [Unknown]
  - Rhabdomyolysis [Unknown]
  - Hypokalaemia [Unknown]
  - Oral candidiasis [Unknown]
  - Serum ferritin increased [Unknown]
  - Amnesia [Unknown]
  - Intervertebral disc protrusion [Unknown]
  - Aortic aneurysm [Unknown]
  - Sinusitis [Unknown]
  - Agranulocytosis [Unknown]
  - Increased tendency to bruise [Unknown]
  - Pancreatic disorder [Unknown]
  - Blood phosphorus decreased [Unknown]
  - Hyponatraemia [Unknown]
  - Mitral valve incompetence [Unknown]
  - Rib fracture [Unknown]
  - Colon adenoma [Unknown]
  - Hepatic encephalopathy [Unknown]
  - Renal failure [Unknown]
  - Pulmonary oedema [Unknown]
  - Atrioventricular block first degree [Unknown]
  - Electrocardiogram QT prolonged [Unknown]
  - Atrial fibrillation [Unknown]
  - Coma [Unknown]
  - Mental status changes [Unknown]
  - Hypotension [Unknown]
  - Pallor [Unknown]
  - Nodule [Unknown]
  - Duodenal polyp [Unknown]
  - Gastrointestinal tract adenoma [Unknown]
  - Duodenal stenosis [Unknown]
  - Benign duodenal neoplasm [Unknown]
  - Melaena [Unknown]
  - Small intestinal haemorrhage [Unknown]
  - Respiratory failure [Unknown]
  - Fat necrosis [Unknown]
  - Lipoma [Unknown]
  - Herpes zoster [Unknown]
  - Thrombocytopenia [Unknown]
  - Confusional state [Unknown]
  - Gingival ulceration [Unknown]
